FAERS Safety Report 8639301 (Version 2)
Quarter: 2012Q4

REPORT INFORMATION
  Report Type: Report from Study
  Country: JP (occurrence: JP)
  Receive Date: 20120627
  Receipt Date: 20121220
  Transmission Date: 20130627
  Serious: Yes (Other)
  Sender: FDA-Public Use
  Company Number: JP-VERTEX PHARMACEUTICALS INC.-AE-2012-009135

PATIENT
  Age: 46 Year
  Sex: Male

DRUGS (14)
  1. VX-950 (TELAPREVIR) [Suspect]
     Indication: CHRONIC HEPATITIS C
     Dosage: 2250 mg, qd
     Route: 048
     Dates: start: 20120428
  2. PEGINTERFERON ALFA-2B [Suspect]
     Indication: CHRONIC HEPATITIS C
     Dosage: 1.5 ?g/kg, qw
     Route: 058
     Dates: start: 20120428, end: 20120504
  3. PEGINTERFERON ALFA-2B [Suspect]
     Dosage: 0.75 ?g/kg, qw
     Route: 058
     Dates: start: 20120505, end: 20120605
  4. PEGINTERFERON ALFA-2B [Suspect]
     Dosage: 1 ?g/kg, qw
     Route: 058
     Dates: start: 20120606
  5. RIBAVIRIN [Concomitant]
     Dosage: 800 mg, qd
     Route: 048
     Dates: start: 20120428
  6. NEXIUM                             /01479302/ [Concomitant]
     Dosage: 20 mg, qd
     Route: 048
     Dates: start: 20120428
  7. TALION                             /01587402/ [Concomitant]
     Dosage: 20 mg, qd
     Route: 048
     Dates: start: 20120428
  8. VOLTAREN                           /00372301/ [Concomitant]
     Dosage: 25 mg, prn
     Route: 054
     Dates: start: 20120428
  9. SALOBEL [Concomitant]
     Dosage: 200 mg, qd
     Route: 048
     Dates: start: 20120502
  10. RINDERON VG [Concomitant]
     Dosage: UNK, prn
     Route: 061
     Dates: start: 20120507, end: 20120507
  11. BIO-THREE [Concomitant]
     Dosage: 6 DF, qd
     Route: 048
     Dates: start: 20120521
  12. OLMETEC [Concomitant]
     Dosage: 20 mg, qd
     Route: 048
  13. METGLUCO [Concomitant]
     Dosage: 1000 mg, qd
     Route: 048
  14. JANUVIA [Concomitant]
     Dosage: 50 mg, qd
     Route: 048

REACTIONS (1)
  - White blood cell count decreased [Recovered/Resolved]
